FAERS Safety Report 11031007 (Version 1)
Quarter: 2015Q2

REPORT INFORMATION
  Report Type: Spontaneous
  Country: FR (occurrence: None)
  Receive Date: 20150413
  Receipt Date: 20150413
  Transmission Date: 20150821
  Serious: Yes (Other)
  Sender: FDA-Public Use
  Company Number: FR-20150093

PATIENT
  Age: 54 Year
  Sex: Female

DRUGS (1)
  1. DOTAREM [Suspect]
     Active Substance: GADOTERATE MEGLUMINE
     Indication: NUCLEAR MAGNETIC RESONANCE IMAGING BRAIN
     Dosage: 0.2 ML/KG, 1 IN 1 D, INTRAVENOUS (NOT OTHERWISE SPECIFIED)
     Route: 042
     Dates: start: 20150304, end: 20150304

REACTIONS (4)
  - Dyspnoea [None]
  - Erythema [None]
  - Oedema peripheral [None]
  - Pruritus generalised [None]

NARRATIVE: CASE EVENT DATE: 20150305
